FAERS Safety Report 24909361 (Version 1)
Quarter: 2025Q1

REPORT INFORMATION
  Report Type: Spontaneous
  Country: IT (occurrence: IT)
  Receive Date: 20250131
  Receipt Date: 20250131
  Transmission Date: 20250409
  Serious: Yes (Other)
  Sender: RANBAXY
  Company Number: IT-SUN PHARMACEUTICAL INDUSTRIES LTD-2025R1-491253

PATIENT
  Age: 61 Year
  Sex: Male

DRUGS (1)
  1. TESTOSTERONE [Suspect]
     Active Substance: TESTOSTERONE
     Indication: Virilism
     Route: 065
     Dates: start: 202105, end: 202204

REACTIONS (2)
  - Breast cancer [Unknown]
  - Cervix carcinoma [Unknown]
